FAERS Safety Report 7508142-9 (Version None)
Quarter: 2011Q2

REPORT INFORMATION
  Report Type: 
  Country: None (occurrence: None)
  Receive Date: 20110527
  Receipt Date: 20110517
  Transmission Date: 20111010
  Serious: Yes (Other)
  Sender: FDA-Public Use
  Company Number: US-BAYER-2011-021715

PATIENT
  Age: 26 Year
  Sex: Female
  Weight: 62.132 kg

DRUGS (1)
  1. MIRENA [Suspect]
     Indication: CONTRACEPTION
     Dosage: UNK
     Dates: start: 20110303

REACTIONS (3)
  - ABDOMINAL PAIN [None]
  - UTERINE SPASM [None]
  - UTERINE PERFORATION [None]
